FAERS Safety Report 17583018 (Version 3)
Quarter: 2020Q3

REPORT INFORMATION
  Report Type: Spontaneous
  Country: JP (occurrence: JP)
  Receive Date: 20200325
  Receipt Date: 20200911
  Transmission Date: 20201102
  Serious: Yes (Hospitalization)
  Sender: FDA-Public Use
  Company Number: JP-UCBSA-2020011793

PATIENT
  Age: 26 Year
  Sex: Female
  Weight: 158 kg

DRUGS (3)
  1. FOLIAMIN [Concomitant]
     Active Substance: FOLIC ACID
  2. RHEUMATREX [Concomitant]
     Active Substance: METHOTREXATE SODIUM
  3. CIMZIA [Suspect]
     Active Substance: CERTOLIZUMAB PEGOL
     Indication: RHEUMATOID ARTHRITIS
     Dosage: 400 MILLIGRAM, EV 2 WEEKS(QOW)
     Route: 058
     Dates: start: 20200305, end: 20200316

REACTIONS (1)
  - Disorientation [Recovered/Resolved]

NARRATIVE: CASE EVENT DATE: 20200314
